FAERS Safety Report 5946878-1 (Version None)
Quarter: 2008Q4

REPORT INFORMATION
  Report Type: 
  Country: None (occurrence: None)
  Receive Date: 20081107
  Receipt Date: 20081107
  Transmission Date: 20090506
  Serious: No
  Sender: FDA-Public Use
  Company Number: None

PATIENT
  Age: 76 Year
  Sex: Male
  Weight: 79.5 kg

DRUGS (1)
  1. MAGNEVIST [Suspect]
     Indication: NUCLEAR MAGNETIC RESONANCE IMAGING
     Dosage: 15 ML ONE IV BOLUS
     Route: 040
     Dates: start: 20081001, end: 20081001

REACTIONS (2)
  - INJECTION SITE ERYTHEMA [None]
  - INJECTION SITE PAIN [None]
